FAERS Safety Report 16927633 (Version 1)
Quarter: 2019Q4

REPORT INFORMATION
  Report Type: Spontaneous
  Country: US (occurrence: US)
  Receive Date: 20191016
  Receipt Date: 20191016
  Transmission Date: 20200122
  Serious: Yes (Other)
  Sender: FDA-Public Use
  Company Number: NVSC2019US001387

PATIENT
  Age: 35 Year
  Sex: Female

DRUGS (1)
  1. NITROFURANTOIN. [Suspect]
     Active Substance: NITROFURANTOIN
     Indication: URINARY TRACT INFECTION
     Dosage: UNK UKN
     Route: 065

REACTIONS (4)
  - Dyspnoea [Unknown]
  - Pulmonary toxicity [Unknown]
  - Pyrexia [Unknown]
  - Rash [Recovered/Resolved]
